FAERS Safety Report 13266071 (Version 1)
Quarter: 2017Q1

REPORT INFORMATION
  Report Type: Spontaneous
  Country: US (occurrence: US)
  Receive Date: 20170223
  Receipt Date: 20170223
  Transmission Date: 20170428
  Serious: Yes (Other)
  Sender: FDA-Public Use
  Company Number: US-LANTHEUS-LMI-2016-04191

PATIENT
  Age: 82 Year
  Sex: Male

DRUGS (1)
  1. DEFINITY [Suspect]
     Active Substance: PERFLUTREN
     Indication: ECHOCARDIOGRAM
     Dosage: 3 ML (1.3 ML OF DEFINITY PREPARED IN 8.7 ML DILUENT)
     Route: 040
     Dates: start: 20161201, end: 20161201

REACTIONS (5)
  - Dyspnoea [Unknown]
  - Anaphylactic shock [Unknown]
  - Cardio-respiratory arrest [Unknown]
  - Rash [Unknown]
  - Pruritus [Unknown]

NARRATIVE: CASE EVENT DATE: 20161201
